FAERS Safety Report 13957898 (Version 1)
Quarter: 2017Q3

REPORT INFORMATION
  Report Type: Spontaneous
  Country: US (occurrence: US)
  Receive Date: 20170911
  Receipt Date: 20170911
  Transmission Date: 20171128
  Serious: Yes (Life-Threatening, Hospitalization)
  Sender: FDA-Public Use
  Company Number: US-ROCHE-1088155

PATIENT
  Age: 50 Year
  Weight: 74.91 kg

DRUGS (15)
  1. FLEXERIL [Concomitant]
     Active Substance: CYCLOBENZAPRINE HYDROCHLORIDE
     Dosage: 1 AND 1/2 TABLET AT BEDTIME FOR 30 DAYS
     Route: 048
     Dates: start: 20120409
  2. METHOTREXATE. [Concomitant]
     Active Substance: METHOTREXATE
     Dosage: 5 TAB AM AND 5 TAB PM FOR 30 DAYS.
     Route: 048
     Dates: start: 20120409
  3. COLCRYS [Concomitant]
     Active Substance: COLCHICINE
     Route: 048
     Dates: start: 20120511
  4. ASPIRIN E.C. [Concomitant]
     Route: 048
  5. DEMADEX [Concomitant]
     Active Substance: TORSEMIDE
     Dosage: DAILY FOR 30 DAYS
     Route: 048
  6. DEXILANT [Concomitant]
     Active Substance: DEXLANSOPRAZOLE
     Dosage: DAILY WITH FOOD FOR 30 DAYS
     Route: 048
     Dates: start: 20120409
  7. LEXAPRO [Concomitant]
     Active Substance: ESCITALOPRAM OXALATE
     Dosage: DAILY FOR 30 DAYS
     Route: 048
     Dates: start: 20120409
  8. VICODIN [Concomitant]
     Active Substance: ACETAMINOPHEN\HYDROCODONE BITARTRATE
     Dosage: 5-500 MG EVERY 4-6 PRN FOR 30 DAYS
     Route: 048
     Dates: start: 20120409
  9. FOLIC ACID. [Concomitant]
     Active Substance: FOLIC ACID
     Dosage: DAILY FOR 30 DAYS
     Route: 048
     Dates: start: 20120409
  10. PREDNISONE. [Concomitant]
     Active Substance: PREDNISONE
     Route: 048
     Dates: start: 20120409
  11. MELOXICAM. [Concomitant]
     Active Substance: MELOXICAM
     Dosage: 1 TABLET DAILY WITH FOOD FOR 30 DAYS
     Route: 048
     Dates: start: 20120409
  12. POTASSIUM CHLORIDE SR [Concomitant]
     Dosage: DAILY AS NEEDED FOR 30 DAYS
     Route: 048
     Dates: start: 20120409
  13. RITUXAN [Suspect]
     Active Substance: RITUXIMAB
     Indication: RHEUMATOID ARTHRITIS
     Route: 042
     Dates: start: 20091029
  14. RECLAST [Concomitant]
     Active Substance: ZOLEDRONIC ACID
     Dosage: DOSE: 5 MG/100 ML
     Route: 042
  15. ZYRTEC [Concomitant]
     Active Substance: CETIRIZINE HYDROCHLORIDE
     Dosage: 5 DYAS BEFORE INFUSION
     Route: 048

REACTIONS (2)
  - Neutropenia [Recovered/Resolved]
  - White blood cell count decreased [Recovered/Resolved]

NARRATIVE: CASE EVENT DATE: 20120613
